FAERS Safety Report 8763733 (Version 1)
Quarter: 2012Q4

REPORT INFORMATION
  Report Type: Spontaneous
  Country: US (occurrence: None)
  Receive Date: 20120831
  Receipt Date: 20120831
  Transmission Date: 20130627
  Serious: Yes (Other)
  Sender: FDA-Public Use
  Company Number: None

PATIENT
  Age: 10 Year
  Sex: Male
  Weight: 44.45 kg

DRUGS (1)
  1. SUPPRELIN LA [Suspect]
     Dosage: one implant - 65 mcg/day yearly sq
     Dates: start: 20120807, end: 20120815

REACTIONS (1)
  - Hypersensitivity [None]
